FAERS Safety Report 26129260 (Version 1)
Quarter: 2025Q4

REPORT INFORMATION
  Report Type: Report from Study
  Country: CA (occurrence: CA)
  Receive Date: 20251208
  Receipt Date: 20251208
  Transmission Date: 20260118
  Serious: Yes (Other)
  Sender: AMGEN
  Company Number: CA-002147023-NVSC2025CA186107

PATIENT
  Sex: Female

DRUGS (1)
  1. AIMOVIG [Suspect]
     Active Substance: ERENUMAB-AOOE
     Indication: Migraine
     Dosage: UNK INJECTABLE
     Route: 065
     Dates: start: 20240531

REACTIONS (3)
  - Intra-abdominal haematoma [Unknown]
  - Colitis ulcerative [Unknown]
  - Decreased immune responsiveness [Unknown]
